FAERS Safety Report 4885519-1 (Version None)
Quarter: 2006Q1

REPORT INFORMATION
  Report Type: 
  Country: None (occurrence: None)
  Receive Date: 20060119
  Receipt Date: 20050317
  Transmission Date: 20060701
  Serious: Yes (Hospitalization, Other)
  Sender: FDA-Public Use
  Company Number: US-MERCK-0503USA03439

PATIENT
  Age: 57 Year
  Sex: Male
  Weight: 102 kg

DRUGS (2)
  1. VIOXX [Suspect]
     Indication: ARTHRITIS
     Route: 048
     Dates: start: 20000501, end: 20020401
  2. [THERAPY UNSPECIFIED] [Concomitant]
     Route: 065

REACTIONS (22)
  - ABDOMINAL MASS [None]
  - ACARODERMATITIS [None]
  - CEREBRAL ATROPHY [None]
  - CEREBROVASCULAR ACCIDENT [None]
  - DEPRESSION [None]
  - DRUG TOXICITY [None]
  - EROSIVE OESOPHAGITIS [None]
  - FAILURE TO THRIVE [None]
  - GASTRIC VARICES [None]
  - GASTRITIS EROSIVE [None]
  - GASTROINTESTINAL HAEMORRHAGE [None]
  - GRAND MAL CONVULSION [None]
  - HEPATIC CIRRHOSIS [None]
  - HEPATIC ENCEPHALOPATHY [None]
  - HEPATOSPLENOMEGALY [None]
  - HIATUS HERNIA [None]
  - MYOCARDIAL INFARCTION [None]
  - OVERDOSE [None]
  - POLYP [None]
  - PORTAL HYPERTENSION [None]
  - PORTAL VEIN THROMBOSIS [None]
  - VARICES OESOPHAGEAL [None]
